FAERS Safety Report 9203126 (Version 1)
Quarter: 2013Q1

REPORT INFORMATION
  Report Type: Spontaneous
  Country: IT (occurrence: None)
  Receive Date: 20130328
  Receipt Date: 20130328
  Transmission Date: 20140127
  Serious: Yes (Other)
  Sender: FDA-Public Use
  Company Number: 2013-05297

PATIENT
  Age: 72 Year
  Sex: Male
  Weight: 68 kg

DRUGS (3)
  1. FLUOROURACIL [Suspect]
     Indication: GASTRIC CANCER
     Route: 042
     Dates: start: 20130116
  2. CARBOPLATIN [Suspect]
     Indication: GASTRIC CANCER
     Route: 042
     Dates: start: 20130116
  3. HERCEPTIN (TRASTUZUMAB) [Suspect]
     Indication: GASTRIC CANCER
     Route: 042
     Dates: start: 20130116

REACTIONS (3)
  - Neutropenia [None]
  - Mucosal inflammation [None]
  - White blood cell count decreased [None]
